FAERS Safety Report 4619585-5 (Version None)
Quarter: 2005Q1

REPORT INFORMATION
  Report Type: 
  Country: None (occurrence: None)
  Receive Date: 20050324
  Receipt Date: 20050316
  Transmission Date: 20050727
  Serious: Yes (Other)
  Sender: FDA-Public Use
  Company Number: US-2005-003778

PATIENT
  Sex: Female

DRUGS (2)
  1. CLIMARA [Suspect]
     Dosage: CONT, TRANSDERMAL
     Route: 062
  2. PREMARIN [Suspect]

REACTIONS (3)
  - APPLICATION SITE DERMATITIS [None]
  - APPLICATION SITE PRURITUS [None]
  - BILIARY CIRRHOSIS PRIMARY [None]
